FAERS Safety Report 19079095 (Version 1)
Quarter: 2021Q1

REPORT INFORMATION
  Report Type: Spontaneous
  Country: BG (occurrence: BG)
  Receive Date: 20210331
  Receipt Date: 20210331
  Transmission Date: 20210420
  Serious: Yes (Other)
  Sender: FDA-Public Use
  Company Number: BG-ASTRAZENECA-2021A208807

PATIENT
  Age: 58 Year
  Sex: Male

DRUGS (2)
  1. SALBUTAMOL [Concomitant]
     Active Substance: ALBUTEROL
     Dates: start: 2012
  2. SYMBICORT [Suspect]
     Active Substance: BUDESONIDE\FORMOTEROL FUMARATE DIHYDRATE
     Dosage: 160 /4.5 MCG 2 INTO 4 INHALATIONS, UNKNOWN UNKNOWN
     Route: 055

REACTIONS (3)
  - Pulmonary fibrosis [Unknown]
  - Wheezing [Unknown]
  - Fatigue [Recovering/Resolving]
